FAERS Safety Report 9062792 (Version 1)
Quarter: 2013Q1

REPORT INFORMATION
  Report Type: Spontaneous
  Country: US (occurrence: US)
  Receive Date: 20130129
  Receipt Date: 20130129
  Transmission Date: 20140127
  Serious: No
  Sender: FDA-Public Use
  Company Number: US-ABBOTT-12P-163-0945157-00

PATIENT
  Age: 46 None
  Sex: Female
  Weight: 56.3 kg

DRUGS (5)
  1. HUMIRA 40 MG/0.8 ML PEN [Suspect]
     Indication: RHEUMATOID ARTHRITIS
     Dates: start: 201101
  2. HUMIRA 40 MG/0.8 ML PEN [Suspect]
     Indication: IRITIS
  3. METHOTREXATE [Concomitant]
     Indication: RHEUMATOID ARTHRITIS
  4. THALITONE [Concomitant]
     Indication: HYPERTENSION
  5. TRAZODONE [Concomitant]
     Indication: SLEEP DISORDER THERAPY

REACTIONS (8)
  - Off label use [Not Recovered/Not Resolved]
  - Depression [Not Recovered/Not Resolved]
  - Injection site papule [Not Recovered/Not Resolved]
  - Iritis [Not Recovered/Not Resolved]
  - Injection site bruising [Not Recovered/Not Resolved]
  - Injection site erythema [Not Recovered/Not Resolved]
  - Injection site swelling [Not Recovered/Not Resolved]
  - Injection site pain [Not Recovered/Not Resolved]
